FAERS Safety Report 6617991 (Version 2)
Quarter: 2013Q1

REPORT INFORMATION
  Report Type: Spontaneous
  Country: TR (occurrence: None)
  Receive Date: 20080407
  Receipt Date: 20130115
  Transmission Date: 20140127
  Serious: Yes (Other)
  Sender: FDA-Public Use
  Company Number: 2008AP000755

PATIENT
  Age: 30 Year
  Sex: Female

DRUGS (2)
  1. CARBAMAZEPINE [Suspect]
  2. CLARITHROMYCIN [Suspect]

REACTIONS (6)
  - DRUG INTERACTION [None]
  - HYPONATRAEMIA [None]
  - DIZZINESS [None]
  - LETHARGY [None]
  - Balance disorder [None]
  - DRUG LEVEL INCREASED [None]
